FAERS Safety Report 7214979-6 (Version None)
Quarter: 2011Q1

REPORT INFORMATION
  Report Type: 
  Country: None (occurrence: None)
  Receive Date: 20110107
  Receipt Date: 20100621
  Transmission Date: 20110831
  Serious: No
  Sender: FDA-Public Use
  Company Number: A0866335A

PATIENT
  Age: 52 Year
  Sex: Male

DRUGS (2)
  1. LOVAZA [Suspect]
     Dosage: 1CAP PER DAY
     Route: 048
     Dates: start: 20100421, end: 20100601
  2. LYRICA [Concomitant]

REACTIONS (1)
  - BACK PAIN [None]
